FAERS Safety Report 20810029 (Version 10)
Quarter: 2023Q2

REPORT INFORMATION
  Report Type: Report from Study
  Country: DE (occurrence: DE)
  Receive Date: 20220510
  Receipt Date: 20230417
  Transmission Date: 20230721
  Serious: Yes (Congenital Anomaly, Other)
  Sender: FDA-Public Use
  Company Number: DE-MYLANLABS-2022M1033567

PATIENT
  Age: 39 Week
  Sex: Female
  Weight: 3.17 kg

DRUGS (6)
  1. EMTRICITABINE\TENOFOVIR DISOPROXIL [Suspect]
     Active Substance: EMTRICITABINE\TENOFOVIR DISOPROXIL
     Indication: HIV infection
     Dosage: 445MG, QD (PRIOR TO CONCEPTION,1COURSE)
     Route: 064
  2. EMTRICITABINE\TENOFOVIR DISOPROXIL [Suspect]
     Active Substance: EMTRICITABINE\TENOFOVIR DISOPROXIL
     Dosage: 400 MG, QD, (MATERNAL DOSE: 400 MG/DAY, QD)
     Route: 064
  3. EMTRICITABINE\TENOFOVIR DISOPROXIL [Suspect]
     Active Substance: EMTRICITABINE\TENOFOVIR DISOPROXIL
     Dosage: UNK
     Route: 065
  4. NEVIRAPINE [Suspect]
     Active Substance: NEVIRAPINE
     Indication: HIV infection
     Dosage: 400MG,QD(PRIOR TO CONCEPTION,1 COURSE)
     Route: 064
  5. NEVIRAPINE [Suspect]
     Active Substance: NEVIRAPINE
     Dosage: 445 MILLIGRAM, QD, MATERNAL DOSE: 445 MG/DAY, QD
     Route: 064
  6. NEVIRAPINE [Suspect]
     Active Substance: NEVIRAPINE
     Dosage: UNK
     Route: 065

REACTIONS (2)
  - Ventricular septal defect [Unknown]
  - Foetal exposure during pregnancy [Recovered/Resolved]

NARRATIVE: CASE EVENT DATE: 20210523
